FAERS Safety Report 9247924 (Version 3)
Quarter: 2013Q2

REPORT INFORMATION
  Report Type: Spontaneous
  Country: US (occurrence: US)
  Receive Date: 20130423
  Receipt Date: 20130524
  Transmission Date: 20140414
  Serious: No
  Sender: FDA-Public Use
  Company Number: US-PFIZER INC-2013122854

PATIENT
  Age: 50 Year
  Sex: Female
  Weight: 62.59 kg

DRUGS (2)
  1. LEVOXYL [Suspect]
     Indication: THYROID DISORDER
     Dosage: 88 MG, 1X/DAY
     Dates: start: 2011, end: 2013
  2. CYTOMEL [Concomitant]
     Indication: THYROID DISORDER
     Dosage: 5 MG, 1X/DAY

REACTIONS (4)
  - Dizziness [Recovering/Resolving]
  - Nausea [Unknown]
  - Vertigo [Unknown]
  - Malaise [Recovering/Resolving]
